FAERS Safety Report 4485022-7 (Version None)
Quarter: 2004Q3

REPORT INFORMATION
  Report Type: 
  Country: None (occurrence: None)
  Receive Date: 20040921
  Receipt Date: 20040218
  Transmission Date: 20050211
  Serious: Yes (Hospitalization)
  Sender: FDA-Public Use
  Company Number: 163-20785-04020494

PATIENT
  Age: 76 Year
  Sex: Female
  Weight: 59 kg

DRUGS (16)
  1. THALOMID [Suspect]
     Indication: MULTIPLE MYELOMA
     Dosage: 100 MG, DAILY, ORAL
     Route: 048
  2. VINCRISTINE [Suspect]
     Indication: MULTIPLE MYELOMA
     Dates: start: 20040128
  3. ADRIAMYCIN PFS [Suspect]
  4. DEXAMETHASONE [Suspect]
     Indication: MULTIPLE MYELOMA
     Dosage: 40 MG, DAILY, ORAL
     Route: 048
  5. SYNTHROID [Concomitant]
  6. MVI (MULTIVITAMINS) (TABLETS) [Concomitant]
  7. NEXIUM [Concomitant]
  8. IRON (IRON) (TABLETS) [Concomitant]
  9. COLACE (DOCUSATE SODIUM) (CAPSULES) [Concomitant]
  10. SENOKOT (SENNAR FRUIT) (TABLETS) [Concomitant]
  11. COUMADIN [Concomitant]
  12. COMPAZINE [Concomitant]
  13. CALCIUIM WITH VITAMIN D (CALCIUM WITH VITAMIN D) (TABLETS) [Concomitant]
  14. PROTONIX [Concomitant]
  15. PRIMAXIN (PRIMAXIN) [Concomitant]
  16. BACTRIM [Concomitant]

REACTIONS (7)
  - DYSPNOEA [None]
  - FATIGUE [None]
  - HYPOXIA [None]
  - PNEUMONIA [None]
  - PRODUCTIVE COUGH [None]
  - PYREXIA [None]
  - TACHYCARDIA [None]
